FAERS Safety Report 19205754 (Version 2)
Quarter: 2021Q3

REPORT INFORMATION
  Report Type: Spontaneous
  Country: US (occurrence: US)
  Receive Date: 20210503
  Receipt Date: 20210908
  Transmission Date: 20211014
  Serious: No
  Sender: FDA-Public Use
  Company Number: US-FARMAPROD-202102-0211

PATIENT
  Age: 61 Year
  Sex: Female

DRUGS (7)
  1. OXERVATE [Suspect]
     Active Substance: CENEGERMIN-BKBJ
     Indication: NEUROTROPHIC KERATOPATHY
     Route: 047
     Dates: start: 20210205, end: 20210216
  2. VITAMIN E [Concomitant]
     Active Substance: .ALPHA.-TOCOPHEROL
  3. VITAMINE C [Concomitant]
     Active Substance: ASCORBIC ACID
  4. MULTIVITAMINES [Concomitant]
     Active Substance: VITAMINS
     Route: 048
     Dates: start: 20200422
  5. VITAMIN D?400 [Concomitant]
  6. FAMCICLOVIR. [Concomitant]
     Active Substance: FAMCICLOVIR
     Route: 048
     Dates: start: 20201030
  7. LYSINE [Concomitant]
     Active Substance: LYSINE
     Dates: start: 20200422

REACTIONS (7)
  - Photophobia [Unknown]
  - Ocular discomfort [Unknown]
  - Blood pressure increased [Unknown]
  - Drug ineffective [Not Recovered/Not Resolved]
  - Eye pain [Recovered/Resolved]
  - Eye swelling [Unknown]
  - Herpes zoster [Unknown]

NARRATIVE: CASE EVENT DATE: 20210205
